FAERS Safety Report 16396447 (Version 2)
Quarter: 2019Q3

REPORT INFORMATION
  Report Type: Report from Study
  Country: None (occurrence: US)
  Receive Date: 20190605
  Receipt Date: 20190730
  Transmission Date: 20191004
  Serious: Yes (Life-Threatening, Other)
  Sender: FDA-Public Use
  Company Number: US-ABBVIE-19K-163-2803091-00

PATIENT
  Age: 64 Year
  Sex: Male

DRUGS (2)
  1. HUMIRA [Suspect]
     Active Substance: ADALIMUMAB
     Route: 058
     Dates: end: 2017
  2. HUMIRA [Suspect]
     Active Substance: ADALIMUMAB
     Indication: COLITIS ULCERATIVE
     Route: 058
     Dates: start: 2015

REACTIONS (11)
  - Seizure [Unknown]
  - Amnesia [Unknown]
  - Gait disturbance [Not Recovered/Not Resolved]
  - Emotional distress [Unknown]
  - Cerebrovascular accident [Recovered/Resolved with Sequelae]
  - Dental implantation [Unknown]
  - Discomfort [Unknown]
  - Frustration tolerance decreased [Unknown]
  - Colitis ulcerative [Not Recovered/Not Resolved]
  - Coma [Unknown]
  - Brain abscess [Recovered/Resolved]

NARRATIVE: CASE EVENT DATE: 2017
